FAERS Safety Report 8368380-2 (Version None)
Quarter: 2012Q2

REPORT INFORMATION
  Report Type: 
  Country: None (occurrence: None)
  Receive Date: 20120517
  Receipt Date: 20120504
  Transmission Date: 20120825
  Serious: Yes (Hospitalization, Other)
  Sender: FDA-Public Use
  Company Number: US-ELI_LILLY_AND_COMPANY-US201201003380

PATIENT
  Sex: Female
  Weight: 48.073 kg

DRUGS (7)
  1. PREDNISONE [Concomitant]
     Indication: RHEUMATOID ARTHRITIS
  2. FORTEO [Suspect]
     Dosage: UNK UNK, UNKNOWN
     Route: 065
  3. METHOTREXATE [Concomitant]
  4. FOSAMAX [Concomitant]
  5. FORTEO [Suspect]
     Indication: OSTEOPOROSIS
     Dosage: UNK, UNKNOWN
     Route: 065
     Dates: start: 20030814
  6. CALCIUM W/VITAMIN D NOS [Concomitant]
  7. FOLIC ACID [Concomitant]

REACTIONS (4)
  - VISUAL IMPAIRMENT [None]
  - FALL [None]
  - FEMORAL NECK FRACTURE [None]
  - PAIN IN EXTREMITY [None]
